FAERS Safety Report 5752059-7 (Version None)
Quarter: 2008Q2

REPORT INFORMATION
  Report Type: 
  Country: None (occurrence: None)
  Receive Date: 20080529
  Receipt Date: 20080519
  Transmission Date: 20081010
  Serious: Yes (Hospitalization)
  Sender: FDA-Public Use
  Company Number: IN-BRISTOL-MYERS SQUIBB COMPANY-14171771

PATIENT
  Age: 54 Year
  Sex: Male
  Weight: 74 kg

DRUGS (7)
  1. METFORMIN HCL [Suspect]
     Indication: DIABETES MELLITUS
     Route: 048
     Dates: start: 20080304, end: 20080417
  2. BLINDED: LIRAGLUTIDE [Suspect]
     Dates: start: 20080415, end: 20080417
  3. BLINDED: GLIMEPIRIDE [Suspect]
     Dates: start: 20080415, end: 20080417
  4. BLINDED: PLACEBO [Suspect]
     Dosage: TAKEN ALSO WITH GLIMEPIRIDE
     Dates: start: 20080415, end: 20080417
  5. EMESET [Concomitant]
     Dates: start: 20080418
  6. SODIUM CHLORIDE [Concomitant]
  7. DICYCLOVERINE HCL [Concomitant]

REACTIONS (4)
  - ABDOMINAL PAIN [None]
  - FATIGUE [None]
  - GASTRITIS [None]
  - VOMITING [None]
